FAERS Safety Report 14020484 (Version 1)
Quarter: 2017Q3

REPORT INFORMATION
  Report Type: Spontaneous
  Country: US (occurrence: US)
  Receive Date: 20170928
  Receipt Date: 20170928
  Transmission Date: 20171128
  Serious: Yes (Other)
  Sender: FDA-Public Use
  Company Number: US-AVEDRO-AVE-2017-0231-AE

PATIENT
  Sex: Male

DRUGS (5)
  1. AVEDRO CROSS-LINKING PRODUCT(S), UNSPECIFIED (RIBOFLAVIN 5^-PHOSPHATE SODIUM) [Suspect]
     Active Substance: RIBOFLAVIN 5^-PHOSPHATE SODIUM
     Indication: PRODUCT USED FOR UNKNOWN INDICATION
     Route: 047
     Dates: start: 201708, end: 201708
  2. DICLOFENAC [Concomitant]
     Active Substance: DICLOFENAC
     Indication: PRODUCT USED FOR UNKNOWN INDICATION
     Dosage: 4 TIMES DAILY
  3. PRED ACETATE [Concomitant]
     Indication: PRODUCT USED FOR UNKNOWN INDICATION
     Dosage: 3 TIMES DAILY
  4. OFLOXACIN. [Concomitant]
     Active Substance: OFLOXACIN
     Indication: PRODUCT USED FOR UNKNOWN INDICATION
     Dosage: 3 TIMES DAILY
  5. PRK POST-ANESTHETIC DROP (2 DROPS OF PROPARACAINE IN A BOTTLE OF UNSPE [Suspect]
     Active Substance: PROPARACAINE
     Indication: ANAESTHESIA
     Dosage: A FEW DROPS DURING THE WEEK
     Route: 047
     Dates: start: 201708, end: 201708

REACTIONS (3)
  - Eye discharge [Unknown]
  - Post procedural infection [Unknown]
  - Ulcerative keratitis [Unknown]

NARRATIVE: CASE EVENT DATE: 201708
